FAERS Safety Report 8960886 (Version 1)
Quarter: 2012Q4

REPORT INFORMATION
  Report Type: Spontaneous
  Country: US (occurrence: None)
  Receive Date: 20121211
  Receipt Date: 20121211
  Transmission Date: 20130627
  Serious: No
  Sender: FDA-Public Use
  Company Number: None

PATIENT
  Age: 57 Year
  Sex: Male

DRUGS (2)
  1. PEGASYS [Suspect]
     Indication: HEPATITIS C
     Route: 058
     Dates: start: 20120917
  2. RIBAVIRIN [Suspect]
     Route: 048
     Dates: start: 20120917

REACTIONS (4)
  - Dry eye [None]
  - Dry skin [None]
  - Fatigue [None]
  - Deafness [None]
